FAERS Safety Report 11267271 (Version 1)
Quarter: 2015Q3

REPORT INFORMATION
  Report Type: Spontaneous
  Country: US (occurrence: US)
  Receive Date: 20150713
  Receipt Date: 20150713
  Transmission Date: 20151125
  Serious: No
  Sender: FDA-Public Use
  Company Number: US-TAKEDA-2013-05658

PATIENT
  Age: 64 Year
  Sex: Female
  Weight: 91.16 kg

DRUGS (2)
  1. VELCADE [Suspect]
     Active Substance: BORTEZOMIB
     Indication: PLASMA CELL MYELOMA
     Dosage: 2.6 MG, UNK
     Route: 058
  2. TYLENOL [Concomitant]
     Active Substance: ACETAMINOPHEN
     Indication: PRODUCT USED FOR UNKNOWN INDICATION

REACTIONS (11)
  - Back pain [Unknown]
  - Peripheral swelling [Unknown]
  - Back pain [Unknown]
  - Peripheral swelling [Unknown]
  - Fatigue [Unknown]
  - Constipation [Unknown]
  - Musculoskeletal pain [Unknown]
  - Weight fluctuation [Unknown]
  - Pain [Unknown]
  - Cough [Unknown]
  - Pain in extremity [Unknown]

NARRATIVE: CASE EVENT DATE: 20130502
